FAERS Safety Report 9500501 (Version 2)
Quarter: 2013Q3

REPORT INFORMATION
  Report Type: Report from Study
  Country: US (occurrence: US)
  Receive Date: 20130905
  Receipt Date: 20130905
  Transmission Date: 20140515
  Serious: Yes (Hospitalization)
  Sender: FDA-Public Use
  Company Number: US-ASTELLAS-2013EU002625

PATIENT
  Age: 64 Year
  Sex: Male
  Weight: 115.3 kg

DRUGS (33)
  1. BLINDED FIDAXOMICIN [Suspect]
     Indication: PROPHYLAXIS
     Dosage: 1 TABLET, QD
     Route: 048
     Dates: start: 20130130, end: 20130213
  2. BLINDED FIDAXOMICIN [Suspect]
     Dosage: 1 TABLET, QD
     Route: 048
     Dates: start: 20130215, end: 20130225
  3. PROGRAF [Suspect]
     Indication: TRANSPLANT REJECTION
     Dosage: 2 MG, SINGLE
     Route: 048
     Dates: start: 20130218, end: 20130218
  4. PROGRAF [Suspect]
     Dosage: 1.5 MG, QD
     Route: 048
     Dates: start: 20130222
  5. TYLENOL [Concomitant]
     Indication: PAIN IN EXTREMITY
     Dosage: 650 MG, PRN
     Route: 048
     Dates: start: 20130129, end: 20130225
  6. TYLENOL [Concomitant]
     Indication: TRANSFUSION
  7. ZOVIRAX [Concomitant]
     Indication: ANTIVIRAL PROPHYLAXIS
     Dosage: 400 MG, TID
     Route: 048
     Dates: start: 20130131, end: 20130225
  8. BUMEX [Concomitant]
     Indication: OEDEMA PERIPHERAL
     Dosage: 1 MG, QD
     Route: 042
     Dates: start: 20130221, end: 20130224
  9. BUMEX [Concomitant]
     Dosage: 1 MG, BID
     Route: 048
     Dates: start: 20130225, end: 20130225
  10. CEFEPIME [Concomitant]
     Indication: FEBRILE NEUTROPENIA
     Dosage: 2 G, TID
     Route: 042
     Dates: start: 20130213, end: 20130218
  11. BENADRYL [Concomitant]
     Dosage: 25-50 MG, PRN
     Route: 048
     Dates: start: 20130130, end: 20130220
  12. NEXIUM [Concomitant]
     Indication: PROPHYLAXIS AGAINST GASTROINTESTINAL ULCER
     Dosage: 40 MG, QD
     Route: 048
     Dates: start: 20130130, end: 20130225
  13. FAMOTIDINE [Concomitant]
     Indication: NAUSEA
     Dosage: 20 MG, BID
     Route: 048
     Dates: start: 20130225, end: 20130306
  14. LASIX [Concomitant]
     Indication: OEDEMA PERIPHERAL
     Dosage: 20-40 MG, QD
     Route: 048
     Dates: start: 20130208, end: 20130220
  15. VICODIN [Concomitant]
     Indication: PAIN IN EXTREMITY
     Dosage: 5-500 MG, PRN
     Route: 048
     Dates: start: 20130225, end: 20130422
  16. PRINIVIL [Concomitant]
     Indication: HYPERTENSION
     Dosage: 10 MG, QD
     Route: 048
     Dates: start: 20130129, end: 20130422
  17. PRINIVIL [Concomitant]
     Dosage: 10 MG, QD
     Route: 048
     Dates: start: 20130130, end: 20130225
  18. MEPHYTON [Concomitant]
     Dosage: 10 MG, WEEKLY
     Route: 061
     Dates: start: 20130204, end: 20130225
  19. POTASSIUM CHLORIDE [Concomitant]
     Indication: HYPOKALAEMIA
     Dosage: 20 MEQ, QD
     Route: 048
     Dates: start: 20130217, end: 20130224
  20. POTASSIUM CHLORIDE [Concomitant]
     Dosage: 20 MEQ, QD
     Route: 042
     Dates: start: 20130217, end: 20130224
  21. OCEAN [Concomitant]
     Indication: NASAL DRYNESS
     Dosage: 1-2 SPRAY, PRN
     Route: 045
     Dates: start: 20130212, end: 20130225
  22. SODIUM PHOSPHATE [Concomitant]
     Indication: HYPONATRAEMIA
     Dosage: 10 MMOL, PRN
     Route: 042
     Dates: start: 20130216, end: 20130218
  23. VORICONAZOLE [Concomitant]
     Indication: ANTIFUNGAL PROPHYLAXIS
     Dosage: 200 MG, BID
     Route: 048
     Dates: start: 20130131
  24. ZOLPIDEM [Concomitant]
     Indication: INSOMNIA
     Dosage: 5 MG, QD
     Route: 048
     Dates: start: 20130129, end: 20130222
  25. AMBIEN [Concomitant]
     Indication: INSOMNIA
     Dosage: 5 MG, PRN
     Route: 048
     Dates: start: 20120119, end: 20130422
  26. OXYIR [Concomitant]
     Indication: PAIN IN EXTREMITY
     Dosage: 2.5 MG, QD
     Route: 048
     Dates: start: 20130223, end: 20130225
  27. FUROSEMIDE [Concomitant]
     Indication: OEDEMA
     Dosage: 20 MG, BID
     Route: 048
     Dates: start: 20130225, end: 20130326
  28. ACYCLOVIR [Concomitant]
     Indication: ANTIVIRAL PROPHYLAXIS
     Dosage: 800 MG, BID
     Route: 048
     Dates: start: 20130304
  29. ANUSOL [Concomitant]
     Indication: PROCTALGIA
     Dosage: 1 APPLICATION, PRN
     Route: 054
     Dates: start: 20130213, end: 20130222
  30. ATIVAN [Concomitant]
     Indication: NAUSEA
     Dosage: 0.5-1.0 MG, PRN
     Route: 048
     Dates: start: 20130130, end: 20130222
  31. COMPAZINE [Concomitant]
     Indication: NAUSEA
     Dosage: 10 MG, PRN
     Route: 048
     Dates: start: 20130130, end: 20130422
  32. MAGNESIUM SULFATE [Concomitant]
     Indication: HYPOMAGNESAEMIA
     Dosage: 2 G, PRN
     Route: 042
     Dates: start: 20130213, end: 20130225
  33. PERIDEX [Concomitant]
     Indication: PROPHYLAXIS
     Dosage: 10 ML, BID
     Route: 048
     Dates: start: 20130130, end: 20130225

REACTIONS (1)
  - Acute graft versus host disease [Recovered/Resolved]
